FAERS Safety Report 8823484 (Version 1)
Quarter: 2012Q4

REPORT INFORMATION
  Report Type: 
  Country: US (occurrence: US)
  Receive Date: 20121003
  Receipt Date: 20121003
  Transmission Date: 20130627
  Serious: No
  Sender: FDA-Public Use
  Company Number: US-009507513-1210USA000864

PATIENT

DRUGS (2)
  1. VYTORIN [Suspect]
     Dosage: 10/10 mg, unk
     Route: 048
  2. VYTORIN [Suspect]
     Dosage: 1 DF, UNK
     Route: 048

REACTIONS (4)
  - Drug dispensing error [Unknown]
  - Underdose [Unknown]
  - Product quality issue [Unknown]
  - No adverse event [Unknown]
